FAERS Safety Report 8615354-X (Version None)
Quarter: 2012Q3

REPORT INFORMATION
  Report Type: 
  Country: None (occurrence: None)
  Receive Date: 20120823
  Receipt Date: 20120817
  Transmission Date: 20120928
  Serious: Yes (Hospitalization)
  Sender: FDA-Public Use
  Company Number: DE-AMGEN-DEUCT2012048773

PATIENT
  Age: 61 Year
  Sex: Female

DRUGS (11)
  1. ONDANSETRON [Concomitant]
     Dosage: 8 MG, UNK
     Dates: start: 20120628
  2. BISOPROLOL FUMARATE [Concomitant]
     Dosage: 5 MG, QD
     Dates: start: 20080101
  3. METFORMIN HYDROCHLORIDE [Concomitant]
     Dosage: UNK UNK, BID
     Dates: start: 20120601
  4. XARELTO [Concomitant]
     Dosage: 20 MG, QD
     Dates: start: 20120601
  5. CISPLATIN [Concomitant]
     Indication: BILE DUCT CANCER
     Dosage: 25 MG/M2, UNK
     Route: 042
     Dates: start: 20120628
  6. AMLODIPINE [Concomitant]
     Dosage: 10 MG, QD
     Dates: start: 20080101
  7. DIPYRONE TAB [Concomitant]
     Dosage: UNK UNK, PRN
     Dates: start: 20120101
  8. VECTIBIX [Suspect]
     Indication: BILE DUCT CANCER
     Dosage: 9 MG/KG, UNK
     Route: 042
     Dates: start: 20120628
  9. GEMCITABINE HYDROCHLORIDE [Concomitant]
     Indication: BILE DUCT CANCER
     Dosage: 1000 MG/M2, UNK
     Route: 042
     Dates: start: 20120628
  10. LANTUS [Concomitant]
     Dosage: 14 IU, QD
     Dates: start: 20120601
  11. DIOVAN [Concomitant]
     Dosage: 150 MG, UNK
     Dates: start: 20080101

REACTIONS (1)
  - PNEUMONIA [None]
